FAERS Safety Report 12141260 (Version 2)
Quarter: 2016Q1

REPORT INFORMATION
  Report Type: Spontaneous
  Country: FR (occurrence: FR)
  Receive Date: 20160303
  Receipt Date: 20160308
  Transmission Date: 20160526
  Serious: Yes (Death, Hospitalization, Other)
  Sender: FDA-Public Use
  Company Number: FR-PFIZER INC-2016134038

PATIENT
  Age: 72 Year
  Sex: Male

DRUGS (10)
  1. COTAREG [Suspect]
     Active Substance: HYDROCHLOROTHIAZIDE\VALSARTAN
     Dosage: 1 DF, DAILY
     Route: 048
     Dates: end: 20160204
  2. LEVOTHYROX [Suspect]
     Active Substance: LEVOTHYROXINE
     Dosage: 1 DF, DAILY
     Route: 048
     Dates: end: 20160204
  3. JANUMET [Suspect]
     Active Substance: METFORMIN HYDROCHLORIDE\SITAGLIPTIN PHOSPHATE
     Dosage: 2 DF, DAILY
     Route: 048
     Dates: end: 20160204
  4. ALLOPURINOL. [Suspect]
     Active Substance: ALLOPURINOL
     Dosage: 200 MG, DAILY
     Route: 048
     Dates: end: 20160204
  5. KARDEGIC [Suspect]
     Active Substance: ASPIRIN LYSINE
     Dosage: 1 DF, DAILY
     Route: 048
     Dates: end: 20160204
  6. CORDARONE [Suspect]
     Active Substance: AMIODARONE HYDROCHLORIDE
     Dosage: 1 DF, DAILY
     Route: 048
     Dates: end: 20160204
  7. PRAVASTATIN [Suspect]
     Active Substance: PRAVASTATIN\PRAVASTATIN SODIUM
     Dosage: 20 MG, DAILY
     Route: 048
     Dates: end: 20160204
  8. METFORMIN HCL [Suspect]
     Active Substance: METFORMIN HYDROCHLORIDE
     Dosage: 1000 MG, DAILY
     Route: 048
     Dates: end: 20160204
  9. CARDENSIEL [Suspect]
     Active Substance: BISOPROLOL FUMARATE
     Dosage: 1 DF, DAILY
     Route: 048
     Dates: end: 20160204
  10. LERCAN [Suspect]
     Active Substance: LERCANIDIPINE
     Dosage: 1 DF, DAILY
     Route: 048
     Dates: end: 20160204

REACTIONS (13)
  - Blood thyroid stimulating hormone increased [Fatal]
  - Dyspnoea [Unknown]
  - Oxygen saturation decreased [Unknown]
  - Lactic acidosis [Fatal]
  - Hypothermia [Unknown]
  - Inflammation [Unknown]
  - Septic shock [Unknown]
  - Acute kidney injury [Fatal]
  - Confusional state [Unknown]
  - Overdose [Fatal]
  - Hypotension [Unknown]
  - Bradycardia [Unknown]
  - Multiple organ dysfunction syndrome [Unknown]

NARRATIVE: CASE EVENT DATE: 20160204
